FAERS Safety Report 7076574-1 (Version None)
Quarter: 2010Q4

REPORT INFORMATION
  Report Type: 
  Country: None (occurrence: None)
  Receive Date: 20101022
  Receipt Date: 20101014
  Transmission Date: 20110411
  Serious: Yes (Hospitalization, Other)
  Sender: FDA-Public Use
  Company Number: JPI-P-012584

PATIENT
  Age: 56 Year
  Sex: Female

DRUGS (2)
  1. XYREM [Suspect]
     Indication: NARCOLEPSY
     Dosage: (4.5 GM (2.25 GM, 2 IN 1 D), ORAL), (6 GM (3GM, 2 IN 1 D), ORAL)
     Route: 048
     Dates: start: 20081003, end: 20090119
  2. XYREM [Suspect]
     Indication: NARCOLEPSY
     Dosage: (4.5 GM (2.25 GM, 2 IN 1 D), ORAL), (6 GM (3GM, 2 IN 1 D), ORAL)
     Route: 048
     Dates: start: 20090120, end: 20101001

REACTIONS (4)
  - BRONCHITIS [None]
  - EXOSTOSIS [None]
  - HERPES ZOSTER [None]
  - NEPHROLITHIASIS [None]
